FAERS Safety Report 11809703 (Version 1)
Quarter: 2015Q4

REPORT INFORMATION
  Report Type: Spontaneous
  Country: US (occurrence: US)
  Receive Date: 20151208
  Receipt Date: 20151208
  Transmission Date: 20160305
  Serious: Yes (Other)
  Sender: FDA-Public Use
  Company Number: US-ABBVIE-15K-163-1511902-00

PATIENT
  Age: 22 Year
  Sex: Male
  Weight: 102.15 kg

DRUGS (1)
  1. HUMIRA [Suspect]
     Active Substance: ADALIMUMAB
     Indication: PSORIASIS
     Route: 058
     Dates: start: 201004, end: 201005

REACTIONS (2)
  - Injection site pain [Not Recovered/Not Resolved]
  - Hodgkin^s disease stage III [Recovered/Resolved]

NARRATIVE: CASE EVENT DATE: 201004
